FAERS Safety Report 5057304-1 (Version None)
Quarter: 2006Q3

REPORT INFORMATION
  Report Type: 
  Country: None (occurrence: None)
  Receive Date: 20060721
  Receipt Date: 20050727
  Transmission Date: 20061208
  Serious: No
  Sender: FDA-Public Use
  Company Number: US-GLAXOSMITHKLINE-A0567952A

PATIENT
  Age: 66 Year
  Sex: Female

DRUGS (8)
  1. AVANDIA [Suspect]
     Dosage: 4MG PER DAY
     Route: 048
     Dates: start: 20050401
  2. LOTREL [Concomitant]
  3. GEMFIBROZIL [Concomitant]
  4. MULTI-VITAMIN [Concomitant]
  5. FUROSAMIDE [Concomitant]
  6. HUMAN INSULIN [Concomitant]
  7. ALLEGRA [Concomitant]
  8. VICODIN [Concomitant]

REACTIONS (2)
  - DRUG INEFFECTIVE [None]
  - KIDNEY INFECTION [None]
